FAERS Safety Report 9840184 (Version 3)
Quarter: 2014Q3

REPORT INFORMATION
  Report Type: Spontaneous
  Country: JP (occurrence: JP)
  Receive Date: 20140124
  Receipt Date: 20140718
  Transmission Date: 20150326
  Serious: Yes (Hospitalization)
  Sender: FDA-Public Use
  Company Number: JP-009507513-1401JPN008002

PATIENT
  Age: 30 Year
  Sex: Male

DRUGS (6)
  1. SELENICA R [Concomitant]
     Active Substance: VALPROATE SODIUM
     Dosage: 1600 MG, AFTER THE SUPPER
     Route: 048
  2. ZYLORIC [Concomitant]
     Active Substance: ALLOPURINOL
     Dosage: 100 MG, BID
     Route: 048
  3. CRESTOR [Concomitant]
     Active Substance: ROSUVASTATIN CALCIUM
     Dosage: 2.5 MG, QD, AFTER THE SUPPER
     Route: 048
  4. PROPECIA [Suspect]
     Active Substance: FINASTERIDE
     Indication: ANDROGENETIC ALOPECIA
     Dosage: 1 MG, QD
     Route: 048
     Dates: end: 20140116
  5. PROPECIA [Suspect]
     Active Substance: FINASTERIDE
     Dosage: DAILY DOSAGE UNKNOWN
     Route: 048
     Dates: start: 20140118
  6. METGLUCO [Concomitant]
     Active Substance: METFORMIN HYDROCHLORIDE
     Dosage: DAILY DOSAGE UNKNOWN
     Route: 048

REACTIONS (2)
  - Adverse event [Unknown]
  - Blood testosterone free decreased [Recovering/Resolving]

NARRATIVE: CASE EVENT DATE: 20140108
